FAERS Safety Report 22118587 (Version 1)
Quarter: 2023Q1

REPORT INFORMATION
  Report Type: Spontaneous
  Country: US (occurrence: None)
  Receive Date: 20230321
  Receipt Date: 20230321
  Transmission Date: 20230417
  Serious: No
  Sender: FDA-Public Use
  Company Number: 2023A043338

PATIENT
  Weight: 59.4 kg

DRUGS (1)
  1. SYMBICORT [Suspect]
     Active Substance: BUDESONIDE\FORMOTEROL FUMARATE DIHYDRATE
     Indication: Bronchitis
     Dosage: TWO TIMES A DAY
     Route: 055

REACTIONS (4)
  - Cough [Unknown]
  - Product dose omission issue [Unknown]
  - Drug effect less than expected [Unknown]
  - Off label use [Unknown]
